FAERS Safety Report 15284827 (Version 1)
Quarter: 2018Q3

REPORT INFORMATION
  Report Type: Spontaneous
  Country: US (occurrence: US)
  Receive Date: 20180816
  Receipt Date: 20180816
  Transmission Date: 20181010
  Serious: No
  Sender: FDA-Public Use
  Company Number: US-ASTRAZENECA-2014SE07686

PATIENT
  Sex: Female
  Weight: 92.5 kg

DRUGS (1)
  1. BYDUREON [Suspect]
     Active Substance: EXENATIDE
     Indication: TYPE 2 DIABETES MELLITUS
     Route: 058

REACTIONS (6)
  - Injection site swelling [Unknown]
  - Injection site haemorrhage [Unknown]
  - Cataract [Unknown]
  - Drug ineffective [Unknown]
  - Influenza [Recovering/Resolving]
  - Hypersensitivity [Unknown]
